FAERS Safety Report 24403272 (Version 2)
Quarter: 2025Q1

REPORT INFORMATION
  Report Type: Report from Study
  Country: CA (occurrence: CA)
  Receive Date: 20241007
  Receipt Date: 20250217
  Transmission Date: 20250409
  Serious: Yes (Other)
  Sender: TAKEDA
  Company Number: CA-TAKEDA-2024TUS094003

PATIENT
  Age: 72 Year
  Sex: Female

DRUGS (10)
  1. VEDOLIZUMAB [Suspect]
     Active Substance: VEDOLIZUMAB
     Indication: Colitis ulcerative
  2. VEDOLIZUMAB [Suspect]
     Active Substance: VEDOLIZUMAB
     Indication: Colitis ulcerative
  3. MESALAMINE [Suspect]
     Active Substance: MESALAMINE
     Indication: Product used for unknown indication
     Dates: start: 20240327, end: 20240605
  4. FLUTICASONE FUROATE [Concomitant]
     Active Substance: FLUTICASONE FUROATE
  5. PANTOPRAZOLE SODIUM [Concomitant]
     Active Substance: PANTOPRAZOLE SODIUM
  6. CALCIUM [Concomitant]
     Active Substance: CALCIUM
  7. VITAMIN D NOS [Concomitant]
     Active Substance: CHOLECALCIFEROL\ERGOCALCIFEROL
  8. EZETIMIBE [Concomitant]
     Active Substance: EZETIMIBE
  9. PERINDOPRIL [Concomitant]
     Active Substance: PERINDOPRIL
  10. Emolax [Concomitant]

REACTIONS (10)
  - Pancreatitis [Unknown]
  - Haematochezia [Unknown]
  - Asthenia [Unknown]
  - Panic attack [Unknown]
  - Insomnia [Unknown]
  - Anxiety [Unknown]
  - Dyspnoea [Unknown]
  - Flatulence [Unknown]
  - Nausea [Unknown]
  - Fatigue [Unknown]

NARRATIVE: CASE EVENT DATE: 20240828
